FAERS Safety Report 9314119 (Version 1)
Quarter: 2013Q2

REPORT INFORMATION
  Report Type: Spontaneous
  Country: US (occurrence: None)
  Receive Date: 20130524
  Receipt Date: 20130524
  Transmission Date: 20140414
  Serious: No
  Sender: FDA-Public Use
  Company Number: None

PATIENT
  Age: 43 Year
  Sex: Female
  Weight: 66.89 kg

DRUGS (3)
  1. BLEOMYCIN [Suspect]
     Dosage: TOTAL DOSE 30 UNIT
  2. CISPLATIN [Suspect]
     Dosage: TOTAL DOSE 35 MG
  3. ETOPOSIDE [Suspect]
     Dosage: TOTAL DOSE 131 MG

REACTIONS (1)
  - Neutrophil count decreased [None]
